FAERS Safety Report 25423939 (Version 2)
Quarter: 2025Q2

REPORT INFORMATION
  Report Type: Spontaneous
  Country: ES (occurrence: ES)
  Receive Date: 20250611
  Receipt Date: 20250624
  Transmission Date: 20250717
  Serious: Yes (Death, Life-Threatening, Hospitalization)
  Sender: ALEXION PHARMACEUTICALS
  Company Number: ES-AstraZeneca-CH-00887796AM

PATIENT
  Age: 12 Year

DRUGS (3)
  1. KOSELUGO [Suspect]
     Active Substance: SELUMETINIB
     Indication: Optic glioma
     Dosage: 30 MILLIGRAM, Q12H
     Route: 065
  2. KOSELUGO [Suspect]
     Active Substance: SELUMETINIB
     Dosage: 35 MILLIGRAM, Q12H
     Route: 065
  3. KOSELUGO [Suspect]
     Active Substance: SELUMETINIB
     Dosage: 30 MILLIGRAM, Q12H
     Route: 065

REACTIONS (11)
  - Respiratory failure [Fatal]
  - Gastric perforation [Fatal]
  - Peritonitis [Fatal]
  - Multiple organ dysfunction syndrome [Fatal]
  - Duodenal ulcer [Recovered/Resolved]
  - Gastrointestinal haemorrhage [Recovered/Resolved]
  - Mouth ulceration [Unknown]
  - Paronychia [Unknown]
  - Dermatitis atopic [Recovering/Resolving]
  - Off label use [Unknown]
  - Stomatitis [Unknown]
